FAERS Safety Report 14219818 (Version 3)
Quarter: 2018Q1

REPORT INFORMATION
  Report Type: Spontaneous
  Country: DE (occurrence: DE)
  Receive Date: 20171123
  Receipt Date: 20180213
  Transmission Date: 20180508
  Serious: Yes (Hospitalization, Other)
  Sender: FDA-Public Use
  Company Number: DE-AMGEN-DEUSP2017173809

PATIENT
  Age: 79 Year
  Sex: Female
  Weight: 72.5 kg

DRUGS (4)
  1. PARSABIV [Suspect]
     Active Substance: ETELCALCETIDE HYDROCHLORIDE
     Dosage: 15 MG, QWK
     Route: 042
     Dates: start: 20170908
  2. HYGROTON [Suspect]
     Active Substance: CHLORTHALIDONE
     Indication: FLUID OVERLOAD
     Dosage: 50 MG, QD
     Route: 065
     Dates: start: 20171005, end: 20171115
  3. PARSABIV [Suspect]
     Active Substance: ETELCALCETIDE HYDROCHLORIDE
     Dosage: 30 MG, QWK
     Route: 042
     Dates: start: 20171115
  4. PARSABIV [Suspect]
     Active Substance: ETELCALCETIDE HYDROCHLORIDE
     Indication: HYPERPARATHYROIDISM
     Dosage: 10 MG, 3 TIMES/WK
     Route: 042
     Dates: start: 20170731

REACTIONS (2)
  - Dermatitis allergic [Unknown]
  - Hypersensitivity vasculitis [Recovered/Resolved]

NARRATIVE: CASE EVENT DATE: 201711
